FAERS Safety Report 5378762-9 (Version None)
Quarter: 2007Q3

REPORT INFORMATION
  Report Type: 
  Country: None (occurrence: None)
  Receive Date: 20070705
  Receipt Date: 20070629
  Transmission Date: 20080115
  Serious: Yes (Hospitalization)
  Sender: FDA-Public Use
  Company Number: B0477709A

PATIENT
  Age: 50 Year
  Sex: Male

DRUGS (2)
  1. HYCAMTIN [Suspect]
     Indication: NON-HODGKIN'S LYMPHOMA
     Route: 042
     Dates: start: 20070401
  2. DOXORUBICIN HCL [Concomitant]
     Indication: NON-HODGKIN'S LYMPHOMA
     Route: 065

REACTIONS (5)
  - HYPOKALAEMIA [None]
  - MUSCLE CONTRACTIONS INVOLUNTARY [None]
  - NEUTROPENIA [None]
  - PANCYTOPENIA [None]
  - PARAESTHESIA [None]
